FAERS Safety Report 16593245 (Version 3)
Quarter: 2019Q3

REPORT INFORMATION
  Report Type: Spontaneous
  Country: GB (occurrence: GB)
  Receive Date: 20190718
  Receipt Date: 20190913
  Transmission Date: 20191004
  Serious: Yes (Hospitalization, Other)
  Sender: FDA-Public Use
  Company Number: GB-009507513-1907GBR009595

PATIENT
  Age: 82 Year
  Sex: Female

DRUGS (4)
  1. COZAAR [Suspect]
     Active Substance: LOSARTAN POTASSIUM
     Indication: HYPERTENSION
     Dosage: UNK
     Route: 048
  2. COZAAR [Suspect]
     Active Substance: LOSARTAN POTASSIUM
     Dosage: 100 MILLIGRAM EVERY DAY AT 6PM
     Route: 048
     Dates: end: 201907
  3. COZAAR [Suspect]
     Active Substance: LOSARTAN POTASSIUM
     Indication: HYPERTENSION
     Dosage: 50 MILLIGRAMS
     Route: 048
     Dates: start: 2009
  4. COZAAR [Suspect]
     Active Substance: LOSARTAN POTASSIUM
     Dosage: 50 MILLIGRAM, QD
     Route: 048
     Dates: start: 201907

REACTIONS (32)
  - Atrioventricular block [Unknown]
  - Lip squamous cell carcinoma [Unknown]
  - Accident [Unknown]
  - Mental disorder [Unknown]
  - Blood pressure inadequately controlled [Unknown]
  - Anxiety [Unknown]
  - Blood pressure abnormal [Unknown]
  - Rotator cuff syndrome [Unknown]
  - Gait disturbance [Unknown]
  - Emotional disorder [Unknown]
  - Ill-defined disorder [Unknown]
  - Fall [Unknown]
  - Stress [Unknown]
  - Gastroenteritis [Unknown]
  - Dizziness [Unknown]
  - Feeling of body temperature change [Unknown]
  - Fear [Unknown]
  - Drug ineffective [Not Recovered/Not Resolved]
  - Cardiac operation [Unknown]
  - Depression [Unknown]
  - Blood pressure fluctuation [Unknown]
  - Fracture [Unknown]
  - Back injury [Unknown]
  - Blood pressure abnormal [Unknown]
  - Blood pressure increased [Unknown]
  - Muscle injury [Unknown]
  - Syncope [Unknown]
  - Bradycardia [Unknown]
  - Neck pain [Unknown]
  - Feeling abnormal [Unknown]
  - Anger [Unknown]
  - Restlessness [Unknown]

NARRATIVE: CASE EVENT DATE: 201804
